FAERS Safety Report 8677656 (Version 2)
Quarter: 2013Q1

REPORT INFORMATION
  Report Type: Spontaneous
  Country: BR (occurrence: None)
  Receive Date: 20120705
  Receipt Date: 20120831
  Transmission Date: 20140127
  Serious: Yes (Other)
  Sender: FDA-Public Use
  Company Number: DSA_58255_2012

PATIENT
  Age: 24 Year
  Sex: Female

DRUGS (1)
  1. ELIDEL [Suspect]
     Indication: WOUND
     Dosage: (1% 100G TOPICAL), (1% 100G USED INTERMITTENTLY TOPICAL)
     Route: 061
     Dates: start: 201008

REACTIONS (7)
  - Lactose intolerance [None]
  - Eye oedema [None]
  - Skin wound [None]
  - Disease recurrence [None]
  - Pruritus [None]
  - Eyelid irritation [None]
  - Eyelid pain [None]
